FAERS Safety Report 4933389-5 (Version None)
Quarter: 2006Q1

REPORT INFORMATION
  Report Type: 
  Country: None (occurrence: None)
  Receive Date: 20060306
  Receipt Date: 20060222
  Transmission Date: 20060701
  Serious: Yes (Other)
  Sender: FDA-Public Use
  Company Number: PHBS2006KR02954

PATIENT
  Age: 19 Year
  Sex: Female

DRUGS (7)
  1. CYCLOSPORINE [Suspect]
     Indication: BONE MARROW TRANSPLANT
     Route: 065
  2. CYCLOPHOSPHAMIDE [Concomitant]
     Dosage: 60 MG/KG/DAY
  3. IRRADIATION [Concomitant]
     Dosage: 1320 CGY
  4. METHOTREXATE [Concomitant]
  5. METHYLPREDNISOLONE [Concomitant]
     Indication: GRAFT VERSUS HOST DISEASE
     Dosage: 2 MG/KG/DAY
     Route: 042
  6. METHYLPREDNISOLONE [Concomitant]
     Dosage: 250 MG, BID
     Route: 042
  7. MYCOPHENOLATE MOFETIL [Concomitant]

REACTIONS (8)
  - APLASIA PURE RED CELL [None]
  - BLOOD BILIRUBIN INCREASED [None]
  - COOMBS DIRECT TEST POSITIVE [None]
  - DIARRHOEA [None]
  - GRAFT VERSUS HOST DISEASE [None]
  - RETICULOCYTOPENIA [None]
  - RETICULOCYTOSIS [None]
  - TRANSAMINASES INCREASED [None]
